FAERS Safety Report 8555007 (Version 3)
Quarter: 2023Q4

REPORT INFORMATION
  Report Type: Spontaneous
  Country: IT (occurrence: IT)
  Receive Date: 20120510
  Receipt Date: 20231202
  Transmission Date: 20240109
  Serious: Yes (Hospitalization, Other)
  Sender: FDA-Public Use
  Company Number: IT-BAYER-2012-039676

PATIENT
  Age: 78 Year
  Sex: Male

DRUGS (1)
  1. NEXAVAR [Suspect]
     Active Substance: SORAFENIB
     Indication: Hepatic cancer
     Dosage: DAILY DOSE 400 MG
     Dates: start: 20111027, end: 20120214

REACTIONS (2)
  - Myocardial infarction [Unknown]
  - Malaise [None]

NARRATIVE: CASE EVENT DATE: 20120101
